FAERS Safety Report 20771399 (Version 1)
Quarter: 2022Q2

REPORT INFORMATION
  Report Type: Spontaneous
  Country: FR (occurrence: FR)
  Receive Date: 20220429
  Receipt Date: 20220429
  Transmission Date: 20220721
  Serious: Yes (Other)
  Sender: FDA-Public Use
  Company Number: FR-PANPHARMAP-2022010260

PATIENT
  Sex: Male

DRUGS (1)
  1. GENTAMICIN [Suspect]
     Active Substance: GENTAMICIN
     Indication: Product used for unknown indication
     Route: 065
     Dates: start: 201701

REACTIONS (4)
  - Renal disorder [Unknown]
  - Condition aggravated [Unknown]
  - Renal failure [Not Recovered/Not Resolved]
  - Sepsis [Unknown]

NARRATIVE: CASE EVENT DATE: 20170101
